FAERS Safety Report 9420137 (Version 3)
Quarter: 2013Q3

REPORT INFORMATION
  Report Type: Spontaneous
  Country: DE (occurrence: DE)
  Receive Date: 20130725
  Receipt Date: 20130814
  Transmission Date: 20140515
  Serious: Yes (Death, Hospitalization)
  Sender: FDA-Public Use
  Company Number: DE-GILEAD-2013-0080070

PATIENT
  Age: 80 Year
  Sex: Female

DRUGS (11)
  1. AMBRISENTAN [Suspect]
     Indication: PULMONARY ARTERIAL HYPERTENSION
     Dosage: UNK UNK, QD
     Route: 048
     Dates: start: 201012, end: 2012
  2. AMBRISENTAN [Suspect]
     Dosage: 10 MG, QD
     Route: 048
     Dates: start: 201209
  3. SILDENAFIL [Concomitant]
     Indication: PULMONARY ARTERIAL HYPERTENSION
     Dosage: 20 MG, TID
     Route: 048
  4. ALLOPURINOL [Concomitant]
     Dosage: 100 MG, QD
     Route: 048
  5. SPIRONOLACTONE [Concomitant]
     Dosage: 25 MG, QD
     Route: 048
  6. PANTOPRAZOLE [Concomitant]
     Dosage: 20 MG, QD
     Route: 048
  7. FERROUS SULFATE [Concomitant]
     Dosage: 100 MG, QD
     Route: 048
  8. FUROSEMIDE [Concomitant]
     Dosage: 40 MG, BID
     Route: 048
  9. HYDROCHLOROTHIAZIDE [Concomitant]
     Dosage: 12.5 MG, QD
     Route: 048
  10. POTASSIUM CHLORIDE [Concomitant]
     Dosage: 600 MG, QD
     Route: 048
  11. LANTUS [Concomitant]
     Dosage: 4 IU, QD
     Route: 058

REACTIONS (6)
  - Circulatory collapse [Fatal]
  - Femur fracture [Not Recovered/Not Resolved]
  - Fall [Recovered/Resolved]
  - Tachyarrhythmia [Unknown]
  - Blood pressure decreased [Unknown]
  - Cardiovascular disorder [Unknown]
